FAERS Safety Report 23688795 (Version 1)
Quarter: 2024Q1

REPORT INFORMATION
  Report Type: Report from Study
  Country: US (occurrence: US)
  Receive Date: 20240329
  Receipt Date: 20240329
  Transmission Date: 20240410
  Serious: Yes (Other)
  Sender: FDA-Public Use
  Company Number: US-GILEAD-2024-0667277

PATIENT

DRUGS (1)
  1. REMDESIVIR [Suspect]
     Active Substance: REMDESIVIR
     Indication: COVID-19
     Dosage: 200MG SUBSEQ DOSES OF 100MG FOR PTS?40KG, OR INITIAL DOSE 5MG/KG SUBSEQ. DOSES 2.5MG/KG FOR PTS{40KG
     Route: 042

REACTIONS (1)
  - Bradycardia [Unknown]
